FAERS Safety Report 16941869 (Version 1)
Quarter: 2019Q4

REPORT INFORMATION
  Report Type: Report from Study
  Country: PK (occurrence: PK)
  Receive Date: 20191021
  Receipt Date: 20191021
  Transmission Date: 20200122
  Serious: Yes (Other)
  Sender: FDA-Public Use
  Company Number: PK-INCYTE CORPORATION-2019IN010416

PATIENT

DRUGS (1)
  1. JAKAVI [Suspect]
     Active Substance: RUXOLITINIB
     Indication: PRIMARY MYELOFIBROSIS
     Dosage: 15 MG, BID (0.5 X OD)
     Route: 048
     Dates: start: 20190423, end: 20190928

REACTIONS (5)
  - Leukocytosis [Not Recovered/Not Resolved]
  - Haemoglobin decreased [Unknown]
  - Platelet count decreased [Unknown]
  - Bicytopenia [Not Recovered/Not Resolved]
  - Total lung capacity increased [Unknown]

NARRATIVE: CASE EVENT DATE: 20190928
